FAERS Safety Report 10478207 (Version 1)
Quarter: 2014Q3

REPORT INFORMATION
  Report Type: Spontaneous
  Country: US (occurrence: None)
  Receive Date: 20140925
  Receipt Date: 20140925
  Transmission Date: 20150326
  Serious: No
  Sender: FDA-Public Use
  Company Number: None

PATIENT
  Age: 56 Year
  Sex: Female
  Weight: 68.95 kg

DRUGS (3)
  1. BENZONATATE. [Suspect]
     Active Substance: BENZONATATE
     Indication: ANTITUSSIVE THERAPY
     Dosage: BY MOUTH 1-2 CAPSULES
     Dates: start: 20140501, end: 20140501
  2. ARMOUR THYROID [Concomitant]
     Active Substance: THYROID, PORCINE\THYROID, UNSPECIFIED
  3. CENTRUM VITAMINS LIQUID [Concomitant]
     Active Substance: VITAMINS

REACTIONS (4)
  - Dysgeusia [None]
  - Nausea [None]
  - Parosmia [None]
  - Blood sodium decreased [None]

NARRATIVE: CASE EVENT DATE: 20140501
